FAERS Safety Report 24774798 (Version 1)
Quarter: 2024Q4

REPORT INFORMATION
  Report Type: Spontaneous
  Country: DE (occurrence: DE)
  Receive Date: 20241226
  Receipt Date: 20241226
  Transmission Date: 20250115
  Serious: Yes (Hospitalization, Other)
  Sender: SANDOZ
  Company Number: DE-002147023-NVSC2020DE297660

PATIENT
  Sex: Female
  Weight: 74 kg

DRUGS (2)
  1. FULVESTRANT [Suspect]
     Active Substance: FULVESTRANT
     Indication: Breast cancer metastatic
     Dosage: 500 MG, Q4W
     Route: 030
     Dates: start: 20191008
  2. KISQALI [Suspect]
     Active Substance: RIBOCICLIB
     Indication: Breast cancer metastatic
     Dosage: 600 MG, QD 21 DAYS INTAKE, 7 DAYS PAUSE)
     Route: 048
     Dates: start: 20191008

REACTIONS (2)
  - Peritonitis [Recovered/Resolved]
  - Rectal perforation [Recovered/Resolved]

NARRATIVE: CASE EVENT DATE: 20200719
